FAERS Safety Report 4461915-1 (Version None)
Quarter: 2004Q3

REPORT INFORMATION
  Report Type: 
  Country: None (occurrence: None)
  Receive Date: 20040929
  Receipt Date: 20031117
  Transmission Date: 20050211
  Serious: No
  Sender: FDA-Public Use
  Company Number: US-GLAXOSMITHKLINE-A0440038A

PATIENT
  Age: 55 Year
  Sex: Female

DRUGS (11)
  1. SEREVENT [Suspect]
     Indication: ASTHMA
     Dosage: 1PUFF TWICE PER DAY
     Route: 055
     Dates: start: 20031001, end: 20031001
  2. RELAFEN [Concomitant]
  3. PROMETRIUM [Concomitant]
  4. SYNTHROID [Concomitant]
  5. PREVACID [Concomitant]
  6. WELLBUTRIN [Concomitant]
  7. ZOLOFT [Concomitant]
  8. VITAMIN C [Concomitant]
  9. OS-CAL [Concomitant]
  10. STOOL SOFTENER [Concomitant]
  11. DAILY VITAMIN [Concomitant]

REACTIONS (4)
  - DIZZINESS [None]
  - DYSPNOEA [None]
  - MOUTH ULCERATION [None]
  - RASH [None]
